FAERS Safety Report 11121484 (Version 2)
Quarter: 2015Q2

REPORT INFORMATION
  Report Type: Spontaneous
  Country: IT (occurrence: IT)
  Receive Date: 20150519
  Receipt Date: 20150601
  Transmission Date: 20150821
  Serious: Yes (Other)
  Sender: FDA-Public Use
  Company Number: IT-PFIZER INC-2015167726

PATIENT
  Age: 83 Year
  Sex: Male

DRUGS (7)
  1. PROVISACOR [Concomitant]
     Active Substance: ROSUVASTATIN
     Dosage: UNK
  2. GAVISCON [Concomitant]
     Active Substance: ALUMINUM HYDROXIDE\MAGNESIUM CARBONATE
     Dosage: UNK
  3. LEVOPRIDE [Concomitant]
     Dosage: UNK
  4. PREFOLIC [Concomitant]
     Active Substance: LEUCOVORIN CALCIUM
     Dosage: UNK
  5. OMEPRAZEN [Suspect]
     Active Substance: OMEPRAZOLE
     Dosage: 20 MG, 1X/DAY
     Route: 048
     Dates: start: 20120809
  6. EFFEXOR XR [Suspect]
     Active Substance: VENLAFAXINE HYDROCHLORIDE
     Dosage: 75 MG, 1X/DAY
     Route: 048
     Dates: start: 20120724
  7. ASCRIPTIN [Concomitant]
     Active Substance: ASPIRIN
     Dosage: UNK

REACTIONS (4)
  - Dehydration [Recovered/Resolved]
  - Cough [Recovered/Resolved]
  - Cachexia [Recovered/Resolved]
  - Hyponatraemia [Recovered/Resolved]

NARRATIVE: CASE EVENT DATE: 20130408
